FAERS Safety Report 18563212 (Version 1)
Quarter: 2020Q4

REPORT INFORMATION
  Report Type: Spontaneous
  Country: GB (occurrence: GB)
  Receive Date: 20201201
  Receipt Date: 20201201
  Transmission Date: 20210114
  Serious: Yes (Other)
  Sender: FDA-Public Use
  Company Number: GB-TEVA-2020-GB-1853553

PATIENT
  Age: 67 Year
  Sex: Female
  Weight: 61 kg

DRUGS (23)
  1. SIRDUPLA [Concomitant]
     Active Substance: FLUTICASONE PROPIONATE\SALMETEROL XINAFOATE
     Dosage: 1-2 PUFFS TWICE A DAY
     Dates: start: 20190816, end: 20201022
  2. TEGRETOL [Concomitant]
     Active Substance: CARBAMAZEPINE
     Dosage: 1 DOSAGE FORMS DAILY; IN THE MORNING
     Dates: start: 20010227
  3. PARACETAMOL [Concomitant]
     Active Substance: ACETAMINOPHEN
     Dosage: TO BE TAKEN EVERY 4-6 HOURS UP TO FOUR TIME..., 2 DF
     Dates: start: 20040203, end: 20201022
  4. PROPRANOLOL [Concomitant]
     Active Substance: PROPRANOLOL HYDROCHLORIDE
     Dosage: 1 DF
     Dates: start: 20170202, end: 20201022
  5. CLARITHROMYCIN. [Concomitant]
     Active Substance: CLARITHROMYCIN
     Dosage: 1 DF
     Dates: start: 20061212, end: 20201022
  6. AMANTADINE HYDROCHLORIDE. [Concomitant]
     Active Substance: AMANTADINE HYDROCHLORIDE
     Dosage: 1 DOSAGE FORMS DAILY; AT BEDTIME
     Dates: start: 20200929
  7. FOLIC ACID. [Concomitant]
     Active Substance: FOLIC ACID
     Dosage: 1 DF
     Dates: start: 20200131, end: 20201022
  8. DOXYCYCLINE. [Concomitant]
     Active Substance: DOXYCYCLINE
     Dosage: TWO TO BE TAKEN ON THE FIRST DAY THEN ONE TO BE...
     Dates: start: 20170320, end: 20201022
  9. CARBOCISTEINE [Concomitant]
     Active Substance: CARBOCYSTEINE
     Dosage: 3 DF
     Dates: start: 20191030, end: 20201022
  10. CLONAZEPAM. [Concomitant]
     Active Substance: CLONAZEPAM
     Dosage: 4 DOSAGE FORMS DAILY; IN THE MORNING AND AT NIGHT
     Dates: start: 20161205, end: 20201022
  11. ZOPICLONE [Concomitant]
     Active Substance: ZOPICLONE
     Dosage: 1 DOSAGE FORMS DAILY; AT NIGHT, IT MAY BE NECESSARY TO TAKE ...
     Dates: start: 20201005, end: 20201102
  12. PREDNISOLONE. [Concomitant]
     Active Substance: PREDNISOLONE
     Dosage: 6 DF
     Dates: start: 20170214, end: 20201022
  13. CITALOPRAM [Concomitant]
     Active Substance: CITALOPRAM HYDROBROMIDE
     Dosage: 1 DF
     Dates: start: 20200414
  14. AZITHROMYCIN ANHYDROUS. [Concomitant]
     Active Substance: AZITHROMYCIN ANHYDROUS
     Dosage: 1 DF
     Dates: start: 20100804, end: 20201022
  15. CIPROFLOXACIN. [Concomitant]
     Active Substance: CIPROFLOXACIN
     Dosage: 2 DF
     Dates: start: 20030304, end: 20201022
  16. DULOXETINE. [Suspect]
     Active Substance: DULOXETINE
     Dosage: 20 MG
     Dates: start: 20201102
  17. LEFLUNOMIDE. [Concomitant]
     Active Substance: LEFLUNOMIDE
     Dosage: 1 DF
     Dates: start: 20050701, end: 20201022
  18. CODEINE PHOSPHATE [Concomitant]
     Active Substance: CODEINE PHOSPHATE
     Dosage: ONE OR TWO TO BE TAKEN EVERY FOUR HOURS WHEN NE...
     Dates: start: 20140918, end: 20201022
  19. QVAR [Concomitant]
     Active Substance: BECLOMETHASONE DIPROPIONATE
     Dosage: 4 DF, THIS AUTH WAS NEVE...
     Dates: start: 20090114, end: 20201022
  20. PHENOBARBITAL. [Concomitant]
     Active Substance: PHENOBARBITAL
     Dosage: 2 DF
     Dates: start: 20010227
  21. ALENDRONIC ACID [Concomitant]
     Active Substance: ALENDRONIC ACID
     Dosage: SAME DAY EACH WEEK TO PR..., 1 DF
     Dates: start: 20190409, end: 20201022
  22. MADOPAR [Concomitant]
     Active Substance: BENSERAZIDE HYDROCHLORIDE\LEVODOPA
     Dosage: 3 DF, AFTER HAVING ...
     Dates: start: 20200320
  23. SALBUTAMOL [Concomitant]
     Active Substance: ALBUTEROL
     Dosage: 2 DF
     Route: 055
     Dates: start: 20010227, end: 20201022

REACTIONS (1)
  - Loss of consciousness [Recovered/Resolved]

NARRATIVE: CASE EVENT DATE: 20201102
